FAERS Safety Report 7087133-9 (Version None)
Quarter: 2010Q4

REPORT INFORMATION
  Report Type: 
  Country: None (occurrence: None)
  Receive Date: 20101106
  Receipt Date: 20101025
  Transmission Date: 20110411
  Serious: No
  Sender: FDA-Public Use
  Company Number: US-WYE-H18345610

PATIENT
  Sex: Male

DRUGS (1)
  1. PRISTIQ [Suspect]
     Dosage: UNKNOWN
     Dates: start: 20101017

REACTIONS (2)
  - DECREASED APPETITE [None]
  - WEIGHT DECREASED [None]
